FAERS Safety Report 17597880 (Version 3)
Quarter: 2020Q4

REPORT INFORMATION
  Report Type: Spontaneous
  Country: US (occurrence: US)
  Receive Date: 20200330
  Receipt Date: 20201118
  Transmission Date: 20210113
  Serious: No
  Sender: FDA-Public Use
  Company Number: US-PFIZER INC-2020131731

PATIENT
  Age: 74 Year
  Sex: Female

DRUGS (3)
  1. IBRANCE [Suspect]
     Active Substance: PALBOCICLIB
     Dosage: 125 MG
  2. IBRANCE [Suspect]
     Active Substance: PALBOCICLIB
     Indication: BREAST CANCER METASTATIC
     Dosage: 100 MG
     Route: 048
  3. FULVESTRANT. [Concomitant]
     Active Substance: FULVESTRANT
     Dosage: UNK, MONTHLY (Q (EVERY) 4 WEEKS)

REACTIONS (3)
  - White blood cell count decreased [Recovering/Resolving]
  - Epistaxis [Unknown]
  - Neutrophil count decreased [Recovering/Resolving]
